FAERS Safety Report 7013485-1 (Version None)
Quarter: 2010Q3

REPORT INFORMATION
  Report Type: 
  Country: None (occurrence: None)
  Receive Date: 20100924
  Receipt Date: 20100917
  Transmission Date: 20110219
  Serious: Yes (Life-Threatening, Hospitalization)
  Sender: FDA-Public Use
  Company Number: FR-BRACCO-000384

PATIENT
  Sex: Female

DRUGS (7)
  1. MULTIHANCE [Suspect]
     Indication: NUCLEAR MAGNETIC RESONANCE IMAGING
     Route: 042
     Dates: start: 20100325, end: 20100325
  2. MULTIHANCE [Suspect]
     Indication: MEMORY IMPAIRMENT
     Route: 042
     Dates: start: 20100325, end: 20100325
  3. OROCAL [Concomitant]
     Route: 048
  4. SIMVASTATIN [Concomitant]
     Route: 048
  5. VASTAREL [Concomitant]
     Route: 048
  6. EFFEXOR [Concomitant]
     Route: 048
  7. TETRAZEPAM [Concomitant]
     Route: 048

REACTIONS (1)
  - ANAPHYLACTIC SHOCK [None]
